FAERS Safety Report 26028103 (Version 1)
Quarter: 2025Q4

REPORT INFORMATION
  Report Type: Spontaneous
  Country: CA (occurrence: CA)
  Receive Date: 20251111
  Receipt Date: 20251111
  Transmission Date: 20260118
  Serious: Yes (Hospitalization, Other)
  Sender: ABBVIE
  Company Number: None

PATIENT

DRUGS (3)
  1. ESCITALOPRAM OXALATE [Suspect]
     Active Substance: ESCITALOPRAM OXALATE
     Indication: Product used for unknown indication
     Route: 048
  2. ESZOPICLONE [Suspect]
     Active Substance: ESZOPICLONE
     Indication: Product used for unknown indication
     Route: 048
  3. CABERGOLINE [Suspect]
     Active Substance: CABERGOLINE
     Indication: Product used for unknown indication
     Route: 048

REACTIONS (3)
  - Toxicity to various agents [Recovering/Resolving]
  - Suicide attempt [Unknown]
  - Product administered to patient of inappropriate age [Unknown]
